FAERS Safety Report 8468900-3 (Version None)
Quarter: 2012Q2

REPORT INFORMATION
  Report Type: 
  Country: None (occurrence: None)
  Receive Date: 20120626
  Receipt Date: 20110107
  Transmission Date: 20120825
  Serious: Yes (Other)
  Sender: FDA-Public Use
  Company Number: BR-ROCHE-752612

PATIENT
  Sex: Female
  Weight: 73 kg

DRUGS (2)
  1. BONIVA [Suspect]
     Indication: OSTEOPOROSIS
     Route: 048
     Dates: start: 20050101, end: 20101201
  2. METHYLDOPA [Concomitant]
     Indication: BLOOD PRESSURE ABNORMAL

REACTIONS (3)
  - DISEASE PROGRESSION [None]
  - DYSPHONIA [None]
  - INFLUENZA [None]
